FAERS Safety Report 17251495 (Version 2)
Quarter: 2020Q1

REPORT INFORMATION
  Report Type: Spontaneous
  Country: US (occurrence: US)
  Receive Date: 20200109
  Receipt Date: 20200110
  Transmission Date: 20200409
  Serious: Yes (Other)
  Sender: FDA-Public Use
  Company Number: US-PFIZER INC-2020001254

PATIENT
  Age: 80 Year
  Sex: Male

DRUGS (3)
  1. BACTRIM [Concomitant]
     Active Substance: SULFAMETHOXAZOLE\TRIMETHOPRIM
     Indication: NOCARDIOSIS
     Dosage: UNK
  2. AMIODARONE HCL [Suspect]
     Active Substance: AMIODARONE HYDROCHLORIDE
     Indication: ATRIAL FIBRILLATION
     Dosage: 1320 MG, UNK (TWO BOLUSES AND A 24-HOUR INFUSION OF AMIODARONE) (TOTAL 1320MG))
     Route: 040
  3. PREDNISONE. [Concomitant]
     Active Substance: PREDNISONE
     Indication: IMMUNE THROMBOCYTOPENIC PURPURA
     Dosage: UNK (CHRONIC)

REACTIONS (4)
  - Hypoxia [Recovering/Resolving]
  - Acute lung injury [Recovering/Resolving]
  - Acute respiratory distress syndrome [Recovering/Resolving]
  - Acute interstitial pneumonitis [Recovering/Resolving]
